FAERS Safety Report 18745718 (Version 1)
Quarter: 2021Q1

REPORT INFORMATION
  Report Type: Spontaneous
  Country: US (occurrence: US)
  Receive Date: 20210114
  Receipt Date: 20210114
  Transmission Date: 20210419
  Serious: Yes (Death, Hospitalization, Other)
  Sender: FDA-Public Use
  Company Number: None

PATIENT
  Age: 63 Year
  Sex: Male
  Weight: 100.6 kg

DRUGS (24)
  1. CHEWABLE ASPIRIN [Concomitant]
     Active Substance: ASPIRIN
  2. FUROSEMIDE. [Concomitant]
     Active Substance: FUROSEMIDE
  3. ZINC SULFATE. [Concomitant]
     Active Substance: ZINC SULFATE
  4. SODIUM CHLORIDE. [Concomitant]
     Active Substance: SODIUM CHLORIDE
  5. TYLENOL [Concomitant]
     Active Substance: ACETAMINOPHEN
  6. CEFAZOLIN [Concomitant]
     Active Substance: CEFAZOLIN
  7. BIO?K PLUS (LACTOBACILLUS SPECIES) [Concomitant]
  8. ZOSYN [Concomitant]
     Active Substance: PIPERACILLIN SODIUM\TAZOBACTAM SODIUM
  9. POTASSIUM BICARBONATE?CITRIC ACID [Concomitant]
  10. DEXTROSE. [Concomitant]
     Active Substance: DEXTROSE
  11. ENOXAPARIN [Concomitant]
     Active Substance: ENOXAPARIN
  12. MICONAZOLE NITRATE. [Concomitant]
     Active Substance: MICONAZOLE NITRATE
  13. FENTANYL. [Concomitant]
     Active Substance: FENTANYL
  14. SIMVASTATIN. [Concomitant]
     Active Substance: SIMVASTATIN
  15. ACETAZOLAMIDE. [Concomitant]
     Active Substance: ACETAZOLAMIDE
  16. CHOLECALCIFEROL [Concomitant]
     Active Substance: CHOLECALCIFEROL
  17. FAMOTIDINE. [Concomitant]
     Active Substance: FAMOTIDINE
  18. INSULIN NPH HUMAN [Concomitant]
  19. PROPOFOL. [Concomitant]
     Active Substance: PROPOFOL
  20. CHLORHEXIDINE GLUCONATE ORAL SOLUTION 0.12% [Suspect]
     Active Substance: CHLORHEXIDINE GLUCONATE
     Indication: DENTAL DISORDER PROPHYLAXIS
     Route: 048
     Dates: start: 20201018, end: 20201029
  21. SODIUM CHLORIDE FLUSH [Concomitant]
     Active Substance: SODIUM CHLORIDE
  22. CHLORHEXIDINE GLUCONATE ORAL SOLUTION 0.12% [Suspect]
     Active Substance: CHLORHEXIDINE GLUCONATE
     Indication: PNEUMONIA
     Route: 048
     Dates: start: 20201018, end: 20201029
  23. ASCORBIC ACID. [Concomitant]
     Active Substance: ASCORBIC ACID
  24. VENELEX TOPICAL [Concomitant]

REACTIONS (7)
  - Burkholderia test positive [None]
  - Blood creatinine increased [None]
  - Enterococcus test positive [None]
  - Recalled product administered [None]
  - Pyrexia [None]
  - Hypoxia [None]
  - Oxygen saturation decreased [None]

NARRATIVE: CASE EVENT DATE: 20201026
